FAERS Safety Report 5011590-2 (Version None)
Quarter: 2006Q2

REPORT INFORMATION
  Report Type: 
  Country: None (occurrence: None)
  Receive Date: 20060524
  Receipt Date: 20060516
  Transmission Date: 20061013
  Serious: Yes (Hospitalization)
  Sender: FDA-Public Use
  Company Number: 145787USA

PATIENT
  Age: 79 Year
  Sex: Male
  Weight: 124.7392 kg

DRUGS (12)
  1. BACLOFEN [Suspect]
     Dosage: 7.5 MILLIGRAM BID ORAL
     Route: 048
     Dates: start: 20060227, end: 20060302
  2. VOLTAREN [Suspect]
     Dosage: 75 MILLIGRAM BID
     Dates: start: 20060201
  3. MS CONTIN [Suspect]
     Dates: start: 20060201
  4. DURAGESIC-100 [Concomitant]
  5. PLAVIX [Concomitant]
  6. LASIX [Concomitant]
  7. SYNTHROID [Concomitant]
  8. FLOMAX [Concomitant]
  9. DIOVAN [Concomitant]
  10. AMBIEN [Concomitant]
  11. EMCYT [Concomitant]
  12. DEXAMETHASONE TAB [Concomitant]

REACTIONS (6)
  - CEREBRAL ATROPHY [None]
  - CONFUSIONAL STATE [None]
  - DYSKINESIA [None]
  - NEURALGIA [None]
  - SOMNOLENCE [None]
  - WRONG DRUG ADMINISTERED [None]
